FAERS Safety Report 22106713 (Version 6)
Quarter: 2023Q2

REPORT INFORMATION
  Report Type: Spontaneous
  Country: CA (occurrence: CA)
  Receive Date: 20230317
  Receipt Date: 20230513
  Transmission Date: 20230722
  Serious: Yes (Other)
  Sender: FDA-Public Use
  Company Number: CA-CELLTRION INC.-2023CA002626

PATIENT

DRUGS (8)
  1. INFLECTRA [Suspect]
     Active Substance: INFLIXIMAB-DYYB
     Indication: Colitis ulcerative
     Dosage: 400 MG, EVERY 8 WEEKS ( 400MG FREQUENCY: WEEK 0, WEEK 2, WEEK 6 AND THEN EVERY 8 WEEKS)
     Route: 042
     Dates: start: 20230127
  2. INFLECTRA [Suspect]
     Active Substance: INFLIXIMAB-DYYB
     Dosage: 800 MG, FREQUENCY: 4 WEEKS
     Route: 042
     Dates: start: 20230127
  3. INFLECTRA [Suspect]
     Active Substance: INFLIXIMAB-DYYB
     Dosage: 400 MG, EVERY 8 WEEKS
     Route: 042
     Dates: start: 20230209
  4. INFLECTRA [Suspect]
     Active Substance: INFLIXIMAB-DYYB
     Dosage: 400 MG, EVERY 8 WEEKS
     Route: 042
     Dates: start: 20230209
  5. INFLECTRA [Suspect]
     Active Substance: INFLIXIMAB-DYYB
     Dosage: 400MG WEEK 6 (FREQUENCY: WEEK 0, WEEK 2, WEEK 6 AND THEN EVERY 8 WEEKS)
     Route: 042
     Dates: start: 20230308
  6. INFLECTRA [Suspect]
     Active Substance: INFLIXIMAB-DYYB
     Dosage: 400MG WEEK 6 (FREQUENCY: WEEK 0, WEEK 2, WEEK 6 AND THEN EVERY 8 WEEKS)
     Route: 042
     Dates: start: 20230308
  7. INFLECTRA [Suspect]
     Active Substance: INFLIXIMAB-DYYB
     Dosage: 800 MG EVERY  4 WEEKS
     Route: 042
     Dates: start: 20230317
  8. INFLECTRA [Suspect]
     Active Substance: INFLIXIMAB-DYYB
     Dosage: 800 MG EVERY  4 WEEKS
     Route: 042
     Dates: start: 20230317

REACTIONS (16)
  - Movement disorder [Unknown]
  - Infusion related reaction [Unknown]
  - Therapeutic response shortened [Unknown]
  - Peripheral swelling [Unknown]
  - Loss of personal independence in daily activities [Unknown]
  - Bone pain [Unknown]
  - Arthralgia [Unknown]
  - Myalgia [Unknown]
  - Feeling hot [Recovered/Resolved]
  - Flushing [Recovered/Resolved]
  - Chills [Recovered/Resolved]
  - Feeling cold [Recovered/Resolved]
  - Muscle spasms [Not Recovered/Not Resolved]
  - Diarrhoea [Not Recovered/Not Resolved]
  - Off label use [Unknown]
  - Off label use [Unknown]

NARRATIVE: CASE EVENT DATE: 20230127
